FAERS Safety Report 10250803 (Version 2)
Quarter: 2014Q2

REPORT INFORMATION
  Report Type: Spontaneous
  Country: BR (occurrence: BR)
  Receive Date: 20140620
  Receipt Date: 20140620
  Transmission Date: 20141212
  Serious: Yes (Other)
  Sender: FDA-Public Use
  Company Number: BR-ABBOTT-14X-020-1181578-00

PATIENT
  Age: 81 Year
  Sex: Female

DRUGS (8)
  1. RYTMONORM [Suspect]
     Indication: PRODUCT USED FOR UNKNOWN INDICATION
     Dosage: IN THE MORNING AND AT NIGHT; DAILY DOSE: 300 MILLIGRAM
     Dates: start: 20140523, end: 20140603
  2. ALL OTHER THERAPEUTIC PRODUCTS [Concomitant]
     Indication: LIVER DISORDER
     Dosage: IN THE MORNING
  3. DAFLON [Concomitant]
     Indication: ANGIOPATHY
     Dosage: IN THE MORNING
  4. TRAYENTA [Concomitant]
     Indication: DIABETES MELLITUS
     Dosage: IN THE MORNING
  5. RESFENOL [Concomitant]
     Indication: PRODUCT USED FOR UNKNOWN INDICATION
     Dosage: COMPOSITION OF RESFENOL: PARACETAMOL+PHENYLEPHRINE HYDROCHLORIDE+CHLORPHENIRAMINE MALEATE
  6. HALOPERIDOL [Concomitant]
     Indication: PRODUCT USED FOR UNKNOWN INDICATION
  7. ALDOMET [Concomitant]
     Indication: PRODUCT USED FOR UNKNOWN INDICATION
  8. ALL OTHER THERAPEUTIC PRODUCTS [Concomitant]
     Indication: GASTRIC DISORDER

REACTIONS (9)
  - Tachycardia [Recovered/Resolved]
  - Rash macular [Unknown]
  - Hypoaesthesia [Unknown]
  - Peripheral swelling [Unknown]
  - Liver disorder [Unknown]
  - Palpitations [Unknown]
  - Fatigue [Not Recovered/Not Resolved]
  - Decreased appetite [Unknown]
  - Dry mouth [Unknown]
